FAERS Safety Report 8333728-1 (Version None)
Quarter: 2012Q2

REPORT INFORMATION
  Report Type: 
  Country: None (occurrence: None)
  Receive Date: 20120503
  Receipt Date: 20120503
  Transmission Date: 20120825
  Serious: No
  Sender: FDA-Public Use
  Company Number: None

PATIENT
  Age: 69 Year
  Sex: Male
  Weight: 72.574 kg

DRUGS (1)
  1. FINASTERIDE [Suspect]
     Indication: BENIGN PROSTATIC HYPERPLASIA
     Dosage: |DOSAGETEXT: 1 BLUE PILL||STRENGTH: UNKNOWN||FREQ: QD||ROUTE: ORAL|
     Route: 048
     Dates: start: 20100812, end: 20120310

REACTIONS (3)
  - EMOTIONAL DISTRESS [None]
  - PENILE CURVATURE [None]
  - PENILE SIZE REDUCED [None]
